FAERS Safety Report 4610286-6 (Version None)
Quarter: 2005Q1

REPORT INFORMATION
  Report Type: 
  Country: None (occurrence: None)
  Receive Date: 20050314
  Receipt Date: 20050302
  Transmission Date: 20050727
  Serious: Yes (Other)
  Sender: FDA-Public Use
  Company Number: 2005010873

PATIENT
  Age: 48 Year
  Sex: Female
  Weight: 88.4514 kg

DRUGS (9)
  1. CALAN [Suspect]
     Indication: HYPERTENSION
     Dosage: 240 MG (240 MG, DAILY), ORAL
     Route: 048
     Dates: start: 20031201, end: 20031201
  2. VERAPAMIL HCL [Suspect]
  3. MONTELUKAST (MONTELUKAST) [Concomitant]
  4. SALBUTAMOL (SALBUTAMOL) [Concomitant]
  5. INSULIN [Concomitant]
  6. SIMVASTATIN [Concomitant]
  7. POTASSIUM ACETATE [Concomitant]
  8. FUROSEMIDE (FUROSEMIDE) [Concomitant]
  9. LISINOPRIL [Concomitant]

REACTIONS (5)
  - BLOOD PRESSURE INCREASED [None]
  - DIZZINESS [None]
  - HEART RATE INCREASED [None]
  - REFUSAL OF TREATMENT BY PATIENT [None]
  - RESTLESSNESS [None]
